FAERS Safety Report 17631913 (Version 1)
Quarter: 2020Q2

REPORT INFORMATION
  Report Type: Report from Study
  Country: JP (occurrence: JP)
  Receive Date: 20200406
  Receipt Date: 20200406
  Transmission Date: 20200713
  Serious: Yes (Hospitalization)
  Sender: FDA-Public Use
  Company Number: JP-ROCHE-2576624

PATIENT
  Age: 68 Year
  Sex: Male
  Weight: 49.9 kg

DRUGS (7)
  1. TRASTUZUMAB EMTANSINE [Suspect]
     Active Substance: ADO-TRASTUZUMAB EMTANSINE
     Indication: NON-SMALL CELL LUNG CANCER
     Route: 041
     Dates: start: 20200211
  2. VALSARTAN. [Concomitant]
     Active Substance: VALSARTAN
     Indication: HYPERTENSION
     Dosage: BEGINNING OF DOSAGE DAY: INVESTIGATIONAL AGENT ADMINISTERING FORMER
     Route: 048
  3. LOXOPROFEN SODIUM HYDRATE [Concomitant]
     Active Substance: LOXOPROFEN SODIUM DIHYDRATE
     Indication: PYREXIA
     Route: 048
     Dates: start: 20200302
  4. HYDROCORTISONE. [Concomitant]
     Active Substance: HYDROCORTISONE
     Indication: ADRENAL INSUFFICIENCY
     Dosage: BEGINNING OF DOSAGE DAY: INVESTIGATIONAL AGENT ADMINISTERING FORMER
     Route: 048
  5. ISOPROPYL UNOPROSTONE [Concomitant]
     Indication: GLAUCOMA
     Dosage: BEGINNING OF DOSAGE DAY:, INVESTIGATIONAL AGENT..ADMINISTER..DOSAGE..DOSE ?INTERVAL..UNCERTAIN.
     Route: 047
  6. ACETAMINOPHEN. [Concomitant]
     Active Substance: ACETAMINOPHEN
     Indication: CANCER PAIN
     Dosage: BEGINNING OF DOSAGE DAY: INVESTIGATIONAL AGENT ADMINISTERING FORMER
     Route: 048
  7. HYDROMORPHONE HYDROCHLORIDE. [Concomitant]
     Active Substance: HYDROMORPHONE HYDROCHLORIDE
     Indication: CANCER PAIN
     Dosage: BEGINNING OF DOSAGE DAY: INVESTIGATIONAL AGENT ADMINISTERING FORMER
     Route: 048

REACTIONS (1)
  - Decreased appetite [Not Recovered/Not Resolved]

NARRATIVE: CASE EVENT DATE: 20200307
